FAERS Safety Report 20965139 (Version 1)
Quarter: 2022Q2

REPORT INFORMATION
  Report Type: Spontaneous
  Country: GB (occurrence: None)
  Receive Date: 20220616
  Receipt Date: 20220616
  Transmission Date: 20220721
  Serious: Yes (Other)
  Sender: FDA-Public Use
  Company Number: None

PATIENT

DRUGS (1)
  1. METHOTREXATE [Suspect]
     Active Substance: METHOTREXATE
     Indication: Product used for unknown indication
     Dosage: TOOK ONE ON DAY ONE, THE NEXT DAY TOOK ONE AND THEN MISSED A DAY AND TOOK ANOTHER
     Route: 065

REACTIONS (3)
  - Visceral pain [Unknown]
  - Dissociation [Unknown]
  - Product use issue [Unknown]
